FAERS Safety Report 20213903 (Version 1)
Quarter: 2021Q4

REPORT INFORMATION
  Report Type: Spontaneous
  Country: US (occurrence: None)
  Receive Date: 20211221
  Receipt Date: 20211221
  Transmission Date: 20220303
  Serious: Yes (Hospitalization)
  Sender: FDA-Public Use
  Company Number: None

PATIENT
  Sex: Male

DRUGS (12)
  1. ENBREL [Suspect]
     Active Substance: ETANERCEPT
     Indication: Ankylosing spondylitis
     Dosage: FREQUENCY : WEEKLY;?
     Route: 058
     Dates: start: 20200129
  2. ADVIL CAP 200MG [Concomitant]
  3. ALLEGRA TAB 180MG [Concomitant]
  4. ASPIRIN TAB 81MG [Concomitant]
  5. ENBREL [Concomitant]
     Active Substance: ETANERCEPT
  6. FISH OIL CAP 1200MG [Concomitant]
  7. GARLIC CAP 450MG [Concomitant]
  8. LIPITOR TAB 40MG [Concomitant]
  9. METFORMIN [Concomitant]
     Active Substance: METFORMIN HYDROCHLORIDE
  10. ONE-A-DAY TAB MENS [Concomitant]
  11. VITAMIN C TAB 1000MG [Concomitant]
  12. VITAMIN E [Concomitant]
     Active Substance: .ALPHA.-TOCOPHEROL

REACTIONS (1)
  - Intentional dose omission [None]
